FAERS Safety Report 8565714-0 (Version None)
Quarter: 2012Q3

REPORT INFORMATION
  Report Type: 
  Country: None (occurrence: None)
  Receive Date: 20120803
  Receipt Date: 20110808
  Transmission Date: 20120928
  Serious: No
  Sender: FDA-Public Use
  Company Number: US-ABBOTT-11P-163-0844765-00

PATIENT
  Sex: Male
  Weight: 95.34 kg

DRUGS (7)
  1. NIASPAN [Suspect]
     Indication: BLOOD CHOLESTEROL
     Dates: start: 20110805
  2. VITAMIN D [Concomitant]
     Indication: PRODUCT USED FOR UNKNOWN INDICATION
  3. ASPIRIN [Concomitant]
     Indication: PRODUCT USED FOR UNKNOWN INDICATION
  4. FOSAMAX [Concomitant]
     Indication: PRODUCT USED FOR UNKNOWN INDICATION
  5. MULTI-VITAMINS [Concomitant]
     Indication: PRODUCT USED FOR UNKNOWN INDICATION
  6. COQ10 [Concomitant]
     Indication: PRODUCT USED FOR UNKNOWN INDICATION
  7. OXYPROSEN [Concomitant]
     Indication: NECK PAIN

REACTIONS (4)
  - HEADACHE [None]
  - FEELING HOT [None]
  - DIARRHOEA [None]
  - HYPERHIDROSIS [None]
